FAERS Safety Report 17551003 (Version 1)
Quarter: 2020Q1

REPORT INFORMATION
  Report Type: Spontaneous
  Country: US (occurrence: US)
  Receive Date: 20200309
  Receipt Date: 20200309
  Transmission Date: 20200409
  Serious: Yes (Hospitalization)
  Sender: FDA-Public Use
  Company Number: None

PATIENT
  Age: 86 Year
  Sex: Male
  Weight: 65.77 kg

DRUGS (1)
  1. POSACONAZOLE [Suspect]
     Active Substance: POSACONAZOLE
     Indication: PNEUMONIA
     Route: 048
     Dates: start: 20190101, end: 20190604

REACTIONS (10)
  - Drug-induced liver injury [None]
  - Bronchopulmonary aspergillosis [None]
  - Abdominal pain [None]
  - Vomiting [None]
  - Mental disorder [None]
  - Hepatic enzyme increased [None]
  - Cholangitis acute [None]
  - Cholecystitis acute [None]
  - Mycobacterium avium complex infection [None]
  - Asthenia [None]

NARRATIVE: CASE EVENT DATE: 20190604
